FAERS Safety Report 25924896 (Version 1)
Quarter: 2025Q4

REPORT INFORMATION
  Report Type: Spontaneous
  Country: US (occurrence: None)
  Receive Date: 20251013
  Receipt Date: 20251013
  Transmission Date: 20260119
  Serious: Yes (Other)
  Sender: FDA-CTU
  Company Number: None

PATIENT
  Age: 59 Year
  Sex: Female
  Weight: 84.6 kg

DRUGS (5)
  1. JOURNAVX [Suspect]
     Active Substance: SUZETRIGINE
     Indication: Back pain
     Dosage: 30 TABLET(S) EVDERY 12 HOURS ORAL
     Route: 048
     Dates: start: 20251003, end: 20251011
  2. JOURNAVX [Suspect]
     Active Substance: SUZETRIGINE
     Indication: Pain in extremity
  3. Diszapam [Concomitant]
  4. Ambien, 5mg [Concomitant]
  5. oxycodone x3 day [Concomitant]

REACTIONS (6)
  - Insomnia [None]
  - Dizziness [None]
  - Fatigue [None]
  - Muscle twitching [None]
  - Feeling jittery [None]
  - Feeling abnormal [None]

NARRATIVE: CASE EVENT DATE: 20251005
